FAERS Safety Report 5257363-7 (Version None)
Quarter: 2007Q1

REPORT INFORMATION
  Report Type: 
  Country: None (occurrence: None)
  Receive Date: 20070302
  Receipt Date: 20070221
  Transmission Date: 20070707
  Serious: Yes (Hospitalization)
  Sender: FDA-Public Use
  Company Number: 6030464

PATIENT
  Age: 87 Year
  Sex: Male

DRUGS (7)
  1. BISOPRODOL FUMARATE [Suspect]
     Indication: ESSENTIAL HYPERTENSION
     Dosage: 1.25 MG (1.25 MG, 1 IN 1 D), ORAL
     Route: 048
     Dates: start: 20060101
  2. CLONIDINE [Suspect]
     Indication: ESSENTIAL HYPERTENSION
     Dosage: 150 MCG/ML
     Dates: start: 20061229
  3. GLICONORM (COATED TABLET) (METFORMIN, GLIBENCLAMIDE) [Concomitant]
  4. VENITRIN (TRANSDERMAL PATCH) (GLYCERYL TRINITRATE) [Concomitant]
  5. CARDIRENE (POWDER AND SOLVENT FOR ORAL SOLUTION) (ACETYLSALICYLATE LYS [Concomitant]
  6. MICARDIS (TABLET) (TELMISARTAN) [Concomitant]
  7. ALDACTONE (COATED TABLET) (SPIRONOLACTONE) [Concomitant]

REACTIONS (7)
  - ATRIOVENTRICULAR BLOCK [None]
  - BRADYARRHYTHMIA [None]
  - FACE INJURY [None]
  - FALL [None]
  - LOSS OF CONSCIOUSNESS [None]
  - PARAESTHESIA [None]
  - TRANSIENT ISCHAEMIC ATTACK [None]
